FAERS Safety Report 5005538-4 (Version None)
Quarter: 2006Q2

REPORT INFORMATION
  Report Type: 
  Country: None (occurrence: None)
  Receive Date: 20060518
  Receipt Date: 20060516
  Transmission Date: 20061013
  Serious: Yes (Hospitalization)
  Sender: FDA-Public Use
  Company Number: FR-ROCHE-448153

PATIENT
  Age: 67 Year
  Sex: Male

DRUGS (5)
  1. LOXEN LP [Suspect]
     Indication: HYPERTENSION
     Route: 048
     Dates: end: 20060314
  2. RISPERDAL [Suspect]
     Indication: SCHIZOPHRENIA
     Route: 048
     Dates: start: 20040615, end: 20060314
  3. NOZINAN [Suspect]
     Indication: SCHIZOPHRENIA
     Route: 048
     Dates: end: 20050214
  4. NOZINAN [Suspect]
     Route: 048
     Dates: start: 20051215, end: 20060314
  5. ARTANE [Suspect]
     Indication: SCHIZOPHRENIA
     Route: 048
     Dates: start: 20060308, end: 20060314

REACTIONS (7)
  - AGRANULOCYTOSIS [None]
  - APLASIA [None]
  - PYREXIA [None]
  - SCROTAL DISORDER [None]
  - WHITE BLOOD CELL COUNT DECREASED [None]
  - WOUND [None]
  - WRIST FRACTURE [None]
